FAERS Safety Report 5661742-3 (Version None)
Quarter: 2008Q1

REPORT INFORMATION
  Report Type: 
  Country: None (occurrence: None)
  Receive Date: 20080312
  Receipt Date: 20080227
  Transmission Date: 20080703
  Serious: Yes (Other)
  Sender: FDA-Public Use
  Company Number: US-BAYER-200810486BCC

PATIENT
  Age: 60 Year
  Sex: Female
  Weight: 70 kg

DRUGS (10)
  1. ASPIRIN [Suspect]
     Indication: ISCHAEMIC HEART DISEASE PROPHYLAXIS
     Dosage: TOTAL DAILY DOSE: 81 MG  UNIT DOSE: 81 MG
     Route: 048
     Dates: start: 20071101, end: 20080114
  2. DIOVAN [Suspect]
     Indication: HYPERTENSION
     Dosage: AS USED: 80  MG
  3. DIOVAN [Suspect]
     Dosage: TOTAL DAILY DOSE: 160 MG
  4. BENICAR [Concomitant]
     Indication: HYPERTENSION
     Dates: start: 20080125
  5. PROTONIX [Concomitant]
     Route: 042
     Dates: start: 20080101
  6. PROTONIX [Concomitant]
     Route: 048
     Dates: start: 20080101
  7. MULTI-VITAMIN [Concomitant]
  8. CALCIUM [Concomitant]
  9. GLUCOSAMINE CHONDROITIN [Concomitant]
  10. L-ARGENINE [Concomitant]

REACTIONS (8)
  - ASTHENIA [None]
  - DIZZINESS POSTURAL [None]
  - FAECES DISCOLOURED [None]
  - GASTRIC ULCER HAEMORRHAGE [None]
  - HAEMATEMESIS [None]
  - HAEMORRHAGE [None]
  - PALPITATIONS [None]
  - VOMITING [None]
